FAERS Safety Report 16012963 (Version 1)
Quarter: 2019Q1

REPORT INFORMATION
  Report Type: Spontaneous
  Country: US (occurrence: US)
  Receive Date: 20190227
  Receipt Date: 20190227
  Transmission Date: 20190418
  Serious: Yes (Hospitalization)
  Sender: FDA-Public Use
  Company Number: None

PATIENT
  Sex: Female

DRUGS (7)
  1. POT CHLORIDE [Concomitant]
     Active Substance: POTASSIUM CHLORIDE
  2. VELCADE [Suspect]
     Active Substance: BORTEZOMIB
     Indication: SKIN DISORDER
     Dosage: ?          OTHER FREQUENCY:DAYS 1,4,8,11/21 D;?
     Route: 058
     Dates: start: 20190117
  3. AMITIZA [Concomitant]
     Active Substance: LUBIPROSTONE
  4. FUROSEMIDE. [Concomitant]
     Active Substance: FUROSEMIDE
  5. FENTANYL. [Concomitant]
     Active Substance: FENTANYL
  6. ONDANSETRON [Concomitant]
     Active Substance: ONDANSETRON
  7. TYLENOL/COD [Concomitant]

REACTIONS (2)
  - Lower limb fracture [None]
  - Therapy cessation [None]
